FAERS Safety Report 4551598-4 (Version None)
Quarter: 2005Q1

REPORT INFORMATION
  Report Type: 
  Country: None (occurrence: None)
  Receive Date: 20050112
  Receipt Date: 20041230
  Transmission Date: 20050727
  Serious: Yes (Hospitalization, Other)
  Sender: FDA-Public Use
  Company Number: 2005002395

PATIENT
  Age: 65 Year
  Sex: Female
  Weight: 62.5964 kg

DRUGS (2)
  1. CELEBREX [Suspect]
     Indication: ARTHRITIS
     Dosage: 200 MG (200 MG, 1 IN 1 D), ORAL
     Route: 048
     Dates: end: 20041201
  2. ANTIHYPERTENSIVES (ANTIHYPERTENSIVES) [Concomitant]

REACTIONS (4)
  - ABASIA [None]
  - HEART RATE IRREGULAR [None]
  - MENTAL IMPAIRMENT [None]
  - VASCULAR OCCLUSION [None]
